FAERS Safety Report 9370262 (Version 1)
Quarter: 2013Q2

REPORT INFORMATION
  Report Type: Spontaneous
  Country: US (occurrence: None)
  Receive Date: 20130624
  Receipt Date: 20130624
  Transmission Date: 20140414
  Serious: Yes (Life-Threatening)
  Sender: FDA-Public Use
  Company Number: 2013P1008515

PATIENT
  Age: 47 Year
  Sex: Female
  Weight: 109 kg

DRUGS (2)
  1. AMLODIPIN [Suspect]
     Route: 048
  2. ETHANOL [Suspect]

REACTIONS (2)
  - Overdose [None]
  - Shock [None]
